FAERS Safety Report 8455503-X (Version None)
Quarter: 2012Q2

REPORT INFORMATION
  Report Type: 
  Country: None (occurrence: None)
  Receive Date: 20120614
  Receipt Date: 20120529
  Transmission Date: 20120825
  Serious: Yes (Other)
  Sender: FDA-Public Use
  Company Number: CC-12-026

PATIENT
  Age: 58 Year
  Sex: Male
  Weight: 99.3377 kg

DRUGS (4)
  1. LISINAPERAL [Concomitant]
  2. ATENOLOL [Concomitant]
  3. DOCUSATE SODIUM LIQUID 150MG / 15ML 0121-0544 [Suspect]
     Indication: CERUMEN REMOVAL
     Dosage: 1 ML TWICE A DAY PER EAR
     Dates: start: 20120405, end: 20120413
  4. METFORMIN HCL [Concomitant]

REACTIONS (3)
  - DEAFNESS TRANSITORY [None]
  - DEAFNESS UNILATERAL [None]
  - EAR INFECTION [None]
